FAERS Safety Report 4794261-7 (Version None)
Quarter: 2005Q4

REPORT INFORMATION
  Report Type: 
  Country: None (occurrence: None)
  Receive Date: 20051011
  Receipt Date: 20050929
  Transmission Date: 20060501
  Serious: Yes (Death)
  Sender: FDA-Public Use
  Company Number: GR-GLAXOSMITHKLINE-B0133170D

PATIENT
  Sex: Female
  Weight: 45 kg

DRUGS (1)
  1. SALMETEROL [Suspect]
     Indication: CHRONIC OBSTRUCTIVE PULMONARY DISEASE
     Dosage: 50MCG TWICE PER DAY
     Route: 055
     Dates: start: 20011004, end: 20021128

REACTIONS (1)
  - DEATH [None]
